FAERS Safety Report 8795341 (Version 1)
Quarter: 2012Q4

REPORT INFORMATION
  Report Type: 
  Country: ES (occurrence: ES)
  Receive Date: 20120918
  Receipt Date: 20120918
  Transmission Date: 20130627
  Serious: Yes (Other)
  Sender: FDA-Public Use
  Company Number: ES-ROCHE-1120627

PATIENT

DRUGS (4)
  1. PEGASYS [Suspect]
     Indication: HEPATITIS C
     Route: 065
  2. COPEGUS [Suspect]
     Indication: HEPATITIS C
     Route: 065
  3. DACLATASVIR [Suspect]
     Indication: HEPATITIS C
     Route: 065
  4. ASUNAPREVIR [Suspect]
     Indication: HEPATITIS C
     Dosage: ONE GROUP:200 mg twice a day and other group: 200 mg once a day
     Route: 065

REACTIONS (1)
  - Squamous cell carcinoma [Unknown]
